FAERS Safety Report 5388304-X (Version None)
Quarter: 2007Q3

REPORT INFORMATION
  Report Type: 
  Country: None (occurrence: None)
  Receive Date: 20070716
  Receipt Date: 20070417
  Transmission Date: 20080115
  Serious: No
  Sender: FDA-Public Use
  Company Number: A0647344A

PATIENT
  Age: 59 Year
  Sex: Female

DRUGS (8)
  1. NICORETTE [Suspect]
     Dosage: 4MG SEE DOSAGE TEXT
     Route: 002
     Dates: start: 20040101
  2. NICODERM [Suspect]
     Indication: SMOKING CESSATION THERAPY
     Route: 062
  3. ZYPREXA [Concomitant]
  4. LUVOX [Concomitant]
  5. RISPERDAL [Concomitant]
  6. TRAZODONE HCL [Concomitant]
  7. RESTORIL [Concomitant]
  8. LENTE [Concomitant]

REACTIONS (4)
  - COLONIC POLYP [None]
  - CONSTIPATION [None]
  - INTENTIONAL DRUG MISUSE [None]
  - NICOTINE DEPENDENCE [None]
